FAERS Safety Report 8680142 (Version 2)
Quarter: 2012Q4

REPORT INFORMATION
  Report Type: 
  Country: JP (occurrence: JP)
  Receive Date: 20120724
  Receipt Date: 20121112
  Transmission Date: 20130627
  Serious: Yes (Hospitalization)
  Sender: FDA-Public Use
  Company Number: JP-ROCHE-1089191

PATIENT
  Age: 63 Year
  Sex: Female

DRUGS (1)
  1. TAMIFLU [Suspect]
     Indication: INFLUENZA
     Dosage: Dosage is uncertain.
     Route: 048

REACTIONS (2)
  - Pneumonia [Unknown]
  - Tubulointerstitial nephritis [Recovered/Resolved]
